FAERS Safety Report 10128438 (Version 1)
Quarter: 2014Q2

REPORT INFORMATION
  Report Type: Spontaneous
  Country: US (occurrence: US)
  Receive Date: 20140428
  Receipt Date: 20140428
  Transmission Date: 20141212
  Serious: No
  Sender: FDA-Public Use
  Company Number: US-B.I. PHARMACEUTICALS,INC./RIDGEFIELD-2014-BI-17926BP

PATIENT
  Age: 87 Year
  Sex: Female
  Weight: 68 kg

DRUGS (4)
  1. SPIRIVA [Suspect]
     Indication: CHRONIC OBSTRUCTIVE PULMONARY DISEASE
     Dosage: 18 MCG
     Route: 048
     Dates: start: 2010
  2. SPIRIVA [Suspect]
     Dosage: 18 MCG
     Route: 055
     Dates: start: 2010
  3. NOVOLOG INSULIN [Concomitant]
     Dosage: FORMULATION: SUBCUTANEOUS
     Route: 058
  4. LANTUS INSULIN [Concomitant]
     Dosage: FORMULATION: SUBCUTANEOUS; STRENGTH: 5 UNITS; DAILY DOSE: 5 UNITS
     Route: 058

REACTIONS (4)
  - Eye haemorrhage [Not Recovered/Not Resolved]
  - Blood glucose decreased [Not Recovered/Not Resolved]
  - Visual acuity reduced [Not Recovered/Not Resolved]
  - Incorrect route of drug administration [Recovered/Resolved]
